FAERS Safety Report 9056370 (Version 1)
Quarter: 2013Q1

REPORT INFORMATION
  Report Type: Spontaneous
  Country: US (occurrence: US)
  Receive Date: 20130204
  Receipt Date: 20130204
  Transmission Date: 20140127
  Serious: Yes (Hospitalization)
  Sender: FDA-Public Use
  Company Number: US-BAYER-2013-012289

PATIENT
  Age: 39 Year
  Sex: Female

DRUGS (4)
  1. MOXIFLOXACIN ORAL [Suspect]
     Indication: UPPER RESPIRATORY TRACT INFECTION
     Dosage: UNK
     Route: 048
  2. LEVOTHYROXINE [Concomitant]
     Indication: HYPOTHYROIDISM
  3. DESVENLAFAXINE [Concomitant]
  4. FEXOFENADINE [Concomitant]

REACTIONS (1)
  - Autoimmune thrombocytopenia [Recovered/Resolved]
